FAERS Safety Report 13391009 (Version 2)
Quarter: 2018Q1

REPORT INFORMATION
  Report Type: Spontaneous
  Country: US (occurrence: US)
  Receive Date: 20170331
  Receipt Date: 20180123
  Transmission Date: 20180508
  Serious: No
  Sender: FDA-Public Use
  Company Number: US-009507513-1703USA008801

PATIENT
  Sex: Female
  Weight: 108.84 kg

DRUGS (1)
  1. NUVARING [Suspect]
     Active Substance: ETHINYL ESTRADIOL\ETONOGESTREL
     Indication: CONTRACEPTION
     Dosage: VAGINAL RING, 3 WEEKS IN 1 WEEK OUT
     Route: 067
     Dates: start: 2016

REACTIONS (3)
  - Incorrect drug administration duration [Unknown]
  - Abnormal withdrawal bleeding [Unknown]
  - Inappropriate schedule of drug administration [Unknown]
